FAERS Safety Report 26112175 (Version 1)
Quarter: 2025Q4

REPORT INFORMATION
  Report Type: Spontaneous
  Country: US (occurrence: None)
  Receive Date: 20251201
  Receipt Date: 20251201
  Transmission Date: 20260117
  Serious: Yes (Hospitalization)
  Sender: FDA-CTU
  Company Number: None

PATIENT
  Sex: Male

DRUGS (11)
  1. VYNDAMAX [Suspect]
     Active Substance: TAFAMIDIS
     Indication: Cardiac amyloidosis
     Dosage: TAKE 1 CAPSULE BY MOUTH EVERY DAY
     Route: 048
     Dates: start: 20250124
  2. CARB/LEVO TAB 10-100MG [Concomitant]
  3. DUTASTERIDE [Concomitant]
     Active Substance: DUTASTERIDE
  4. GABAPENTIN [Concomitant]
     Active Substance: GABAPENTIN
  5. HUMALOG KWIKPEN [Concomitant]
     Active Substance: INSULIN LISPRO
  6. INVOKANA TAB 300MG [Concomitant]
  7. ISOSORB MONO TAB 120MG ER [Concomitant]
  8. LANSOPRAZOLE [Concomitant]
     Active Substance: LANSOPRAZOLE
  9. METOPROL TAR TAB 100MG [Concomitant]
  10. POTASSIUM CHLORIDE [Concomitant]
     Active Substance: POTASSIUM CHLORIDE
  11. RANOLAZINE TAB 500MG ER [Concomitant]

REACTIONS (2)
  - Heart rate irregular [None]
  - Intestinal obstruction [None]
